FAERS Safety Report 15694476 (Version 1)
Quarter: 2018Q4

REPORT INFORMATION
  Report Type: Spontaneous
  Country: AR (occurrence: AR)
  Receive Date: 20181206
  Receipt Date: 20181206
  Transmission Date: 20190205
  Serious: Yes (Other)
  Sender: FDA-Public Use
  Company Number: PHHY2018AR172819

PATIENT

DRUGS (2)
  1. AMIODARONE [Suspect]
     Active Substance: AMIODARONE
     Indication: JUNCTIONAL ECTOPIC TACHYCARDIA
     Dosage: 10 MG/KG, QD FOR 48-72 H
     Route: 042
  2. AMIODARONE [Suspect]
     Active Substance: AMIODARONE
     Dosage: 20 MG/KG (5-20 MG/KG), QD
     Route: 048

REACTIONS (1)
  - Corneal dystrophy [Unknown]
